APPROVED DRUG PRODUCT: VISUDYNE
Active Ingredient: VERTEPORFIN
Strength: 15MG/VIAL
Dosage Form/Route: INJECTABLE;INJECTION
Application: N021119 | Product #001
Applicant: BAUSCH AND LOMB IRELAND LTD
Approved: Apr 12, 2000 | RLD: Yes | RS: Yes | Type: RX